FAERS Safety Report 11225044 (Version 2)
Quarter: 2015Q3

REPORT INFORMATION
  Report Type: Spontaneous
  Country: US (occurrence: US)
  Receive Date: 20150629
  Receipt Date: 20150731
  Transmission Date: 20151125
  Serious: Yes (Other)
  Sender: FDA-Public Use
  Company Number: US-PFIZER INC-2015211327

PATIENT
  Age: 55 Year
  Sex: Male

DRUGS (2)
  1. SULFASALAZINE. [Suspect]
     Active Substance: SULFASALAZINE
     Indication: RHEUMATOID ARTHRITIS
     Dosage: 500MG TABLET 2 TABLETS TWICE A DAY
     Route: 048
     Dates: start: 2012, end: 2013
  2. METHOTREXATE [Concomitant]
     Active Substance: METHOTREXATE
     Indication: RHEUMATOID ARTHRITIS
     Dosage: 8 TABLETS OF 2.5MG TABLETS ONCE A WEEK
     Dates: start: 2012, end: 201505

REACTIONS (2)
  - Drug effect incomplete [Unknown]
  - Prostate cancer [Unknown]

NARRATIVE: CASE EVENT DATE: 2012
